FAERS Safety Report 9544271 (Version 2)
Quarter: 2013Q3

REPORT INFORMATION
  Report Type: Spontaneous
  Country: US (occurrence: US)
  Receive Date: 20130923
  Receipt Date: 20130923
  Transmission Date: 20140515
  Serious: Yes (Hospitalization, Other)
  Sender: FDA-Public Use
  Company Number: US-MERCK-1306USA003226

PATIENT
  Age: 77 Year
  Sex: Female
  Weight: 70.75 kg

DRUGS (1)
  1. JANUVIA [Suspect]
     Dosage: 100 MG, QD
     Route: 048

REACTIONS (1)
  - Pancreatitis relapsing [Recovered/Resolved]
